FAERS Safety Report 7003828-7 (Version None)
Quarter: 2010Q3

REPORT INFORMATION
  Report Type: 
  Country: None (occurrence: None)
  Receive Date: 20100920
  Receipt Date: 20100915
  Transmission Date: 20110219
  Serious: Yes (Life-Threatening, Hospitalization, Other)
  Sender: FDA-Public Use
  Company Number: FR-BRISTOL-MYERS SQUIBB COMPANY-15203664

PATIENT
  Age: 73 Year
  Sex: Female

DRUGS (9)
  1. ORENCIA [Suspect]
     Dosage: 1 INJECTION MONTHLY
     Route: 042
     Dates: start: 20091021, end: 20100129
  2. TAHOR [Concomitant]
     Indication: DYSLIPIDAEMIA
     Route: 048
  3. OROCAL D3 [Concomitant]
     Indication: OSTEOPOROSIS
     Dosage: 1 DF=1 TAB
     Route: 048
  4. ACETAMINOPHEN [Concomitant]
  5. TOPALGIC [Concomitant]
  6. LOXEN [Concomitant]
     Indication: HYPERTENSION
     Dosage: 2 TAB PER DAY
  7. HUMALOG [Concomitant]
     Indication: DIABETES MELLITUS
     Dosage: 1 DF=2 TAB
     Route: 058
  8. MICARDIS [Concomitant]
     Indication: HYPERTENSION
     Dosage: 1 TAB PER DAY
  9. CORTANCYL [Concomitant]
     Indication: ANGIOPATHY
     Dosage: 1 TAB PER DAY

REACTIONS (5)
  - HERPES ZOSTER [None]
  - PANCYTOPENIA [None]
  - SEPSIS [None]
  - ULCER [None]
  - VASCULITIS NECROTISING [None]
